FAERS Safety Report 17057744 (Version 1)
Quarter: 2019Q4

REPORT INFORMATION
  Report Type: Report from Study
  Country: US (occurrence: US)
  Receive Date: 20191121
  Receipt Date: 20191121
  Transmission Date: 20200122
  Serious: Yes (Other)
  Sender: FDA-Public Use
  Company Number: US-HORIZON-ACT-0314-2019

PATIENT
  Age: 14 Year
  Sex: Female

DRUGS (1)
  1. ACTIMMUNE [Suspect]
     Active Substance: INTERFERON GAMMA-1B
     Indication: CHRONIC GRANULOMATOUS DISEASE
     Dosage: 60 MCG TIW

REACTIONS (9)
  - Lack of injection site rotation [Unknown]
  - Injection site discolouration [Unknown]
  - Product quality issue [Unknown]
  - Neutropenia [Unknown]
  - Injection site erythema [Unknown]
  - Injection site necrosis [Unknown]
  - Injection site scar [Unknown]
  - Scar pain [Unknown]
  - Injection site pain [Unknown]
